FAERS Safety Report 7455172-1 (Version None)
Quarter: 2011Q2

REPORT INFORMATION
  Report Type: 
  Country: None (occurrence: None)
  Receive Date: 20110503
  Receipt Date: 20110228
  Transmission Date: 20111010
  Serious: Yes (Hospitalization)
  Sender: FDA-Public Use
  Company Number: US-BAYER-2011-019377

PATIENT
  Age: 55 Year
  Sex: Female
  Weight: 59.41 kg

DRUGS (11)
  1. ASPIRIN [Concomitant]
     Indication: PAIN
     Dosage: 81 MG PD
     Dates: start: 20110301
  2. METFORMIN HYDROCHLORIDE [Concomitant]
     Indication: DIABETES MELLITUS
     Dosage: 1000 MG PO, BID
     Route: 048
     Dates: start: 20060501
  3. SIMVASTATIN [Concomitant]
     Indication: BLOOD CHOLESTEROL ABNORMAL
     Dosage: 80 MG PD
     Dates: start: 20110301
  4. SORAFENIB (RAF KINASE INHIBITOR) [Suspect]
     Indication: BREAST CANCER METASTATIC
     Dosage: 400 MG PD
     Route: 048
     Dates: start: 20110111, end: 20110219
  5. IXABEPILONE [Suspect]
     Indication: BREAST CANCER METASTATIC
     Dosage: 25 MG/M2
     Route: 042
     Dates: start: 20110111, end: 20110207
  6. HYDROCHLOROTHIAZIDE [Concomitant]
     Indication: HYPERTENSION
     Dosage: 25 MG PD
     Dates: start: 20110216
  7. GLYBURIDE [Concomitant]
     Indication: DIABETES MELLITUS
     Dosage: 5 MG PO BID
     Route: 048
     Dates: start: 20060501
  8. LIDODERM [Concomitant]
     Indication: PAIN
     Dosage: 5 % ON FOR 12 HRS AND OFF FOR 12 HRS
     Dates: start: 20110301
  9. NORVASC [Concomitant]
     Dosage: 5 MG ONCE DAILY
     Route: 048
  10. VITAMIN D [Concomitant]
     Indication: VITAMIN D DEFICIENCY
     Dosage: 1000 IU PD
     Dates: start: 20091201
  11. AMLODIPINE [Concomitant]
     Indication: HYPERTENSION
     Dosage: 5 MG PD
     Dates: start: 20110101

REACTIONS (2)
  - JOINT DISLOCATION [None]
  - CEREBROVASCULAR ACCIDENT [None]
